FAERS Safety Report 10733924 (Version 1)
Quarter: 2015Q1

REPORT INFORMATION
  Report Type: Spontaneous
  Country: US (occurrence: None)
  Receive Date: 20150121
  Receipt Date: 20150121
  Transmission Date: 20150721
  Serious: Yes (Other)
  Sender: FDA-Public Use
  Company Number: 2015JUB00009

PATIENT
  Sex: Female

DRUGS (1)
  1. PANTOPRAZOLE SODIUM DELAYED RELEASE [Suspect]
     Active Substance: PANTOPRAZOLE SODIUM
     Indication: COELIAC DISEASE
     Dates: start: 20141214

REACTIONS (1)
  - Gastrointestinal ulcer [None]

NARRATIVE: CASE EVENT DATE: 20150112
